FAERS Safety Report 7636174-9 (Version None)
Quarter: 2011Q3

REPORT INFORMATION
  Report Type: 
  Country: None (occurrence: None)
  Receive Date: 20110726
  Receipt Date: 20110714
  Transmission Date: 20111222
  Serious: Yes (Hospitalization)
  Sender: FDA-Public Use
  Company Number: DE-ROCHE-765762

PATIENT
  Sex: Female
  Weight: 79 kg

DRUGS (16)
  1. RIBAVIRIN [Suspect]
     Route: 048
     Dates: start: 20110209, end: 20110301
  2. CERTICAN [Concomitant]
  3. CALCITRIOL [Concomitant]
  4. CHLORHEXAMED [Concomitant]
  5. PANTOPRAZOLE [Concomitant]
  6. PEGINTERFERON ALFA-2A [Suspect]
     Route: 058
     Dates: start: 20110209
  7. CELLCEPT [Concomitant]
  8. URSO FALK [Concomitant]
  9. METOPROLOL TARTRATE [Concomitant]
  10. LEVOTHYROXINE SODIUM [Concomitant]
  11. RIBAVIRIN [Suspect]
     Route: 048
     Dates: start: 20110301
  12. LERCANIDIPINE [Concomitant]
  13. CALCIUM ACETATE [Concomitant]
  14. TORSEMIDE [Concomitant]
  15. ASPIRIN [Concomitant]
  16. ARANESP [Concomitant]
     Route: 058

REACTIONS (1)
  - HAEMOLYSIS [None]
